FAERS Safety Report 6525651-X (Version None)
Quarter: 2010Q1

REPORT INFORMATION
  Report Type: 
  Country: None (occurrence: None)
  Receive Date: 20100104
  Receipt Date: 20091223
  Transmission Date: 20100710
  Serious: Yes (Death, Other)
  Sender: FDA-Public Use
  Company Number: US-ELI_LILLY_AND_COMPANY-US200912002184

PATIENT
  Age: 48 Year
  Sex: Male

DRUGS (2)
  1. CYMBALTA [Suspect]
  2. KEFLEX [Suspect]

REACTIONS (3)
  - COMPLETED SUICIDE [None]
  - DRUG HYPERSENSITIVITY [None]
  - HOMICIDE [None]
